FAERS Safety Report 6613786-2 (Version None)
Quarter: 2010Q1

REPORT INFORMATION
  Report Type: 
  Country: None (occurrence: None)
  Receive Date: 20100226
  Receipt Date: 20100217
  Transmission Date: 20100710
  Serious: Yes (Hospitalization, Other)
  Sender: FDA-Public Use
  Company Number: 2008-187499-NL

PATIENT
  Age: 23 Year
  Sex: Female
  Weight: 86.1834 kg

DRUGS (3)
  1. NUVARING [Suspect]
     Indication: CONTRACEPTION
     Dosage: 1 DF;
     Dates: start: 20040101, end: 20060601
  2. PRILOSEC (CON.) [Concomitant]
  3. DOXYCYCLINE (CON.) [Concomitant]

REACTIONS (21)
  - ABORTION SPONTANEOUS [None]
  - ANKLE FRACTURE [None]
  - CHEST PAIN [None]
  - DEEP VEIN THROMBOSIS [None]
  - DRUG EXPOSURE BEFORE PREGNANCY [None]
  - EXERCISE LACK OF [None]
  - FURUNCLE [None]
  - HYPEREMESIS GRAVIDARUM [None]
  - LIGAMENT RUPTURE [None]
  - LOBAR PNEUMONIA [None]
  - MUSCULOSKELETAL STIFFNESS [None]
  - NAUSEA [None]
  - PAIN IN EXTREMITY [None]
  - PELVIC PAIN [None]
  - PLEURITIC PAIN [None]
  - PREGNANCY [None]
  - PREGNANCY TEST POSITIVE [None]
  - REFUSAL OF TREATMENT BY PATIENT [None]
  - THYROID MASS [None]
  - UNINTENDED PREGNANCY [None]
  - VOMITING [None]
